FAERS Safety Report 21285346 (Version 1)
Quarter: 2022Q3

REPORT INFORMATION
  Report Type: Spontaneous
  Country: US (occurrence: None)
  Receive Date: 20220901
  Receipt Date: 20220901
  Transmission Date: 20221026
  Serious: No
  Sender: FDA-Public Use
  Company Number: None

PATIENT
  Age: 68 Year
  Sex: Female

DRUGS (6)
  1. CAPECITABINE [Suspect]
     Active Substance: CAPECITABINE
     Indication: Colorectal cancer stage IV
     Dosage: FREQUENCY : TWICE A DAY;?
     Route: 048
     Dates: start: 20220317
  2. LEVOTHYROXINE 0.112MG (112MCG) CAPS [Concomitant]
  3. LEVOTHYROXPROBIOTIC ADULT CAPSULES [Concomitant]
  4. AMLODIPINE BESYLATE [Concomitant]
     Active Substance: AMLODIPINE BESYLATE
  5. VITAMIN D 1,000IU SOFTGELS [Concomitant]
  6. ZINC 50MG TABLETS [Concomitant]

REACTIONS (3)
  - Abdominal infection [None]
  - Sepsis [None]
  - Therapy interrupted [None]

NARRATIVE: CASE EVENT DATE: 20220612
